FAERS Safety Report 6405416-X (Version None)
Quarter: 2009Q4

REPORT INFORMATION
  Report Type: 
  Country: None (occurrence: None)
  Receive Date: 20091016
  Receipt Date: 20091016
  Transmission Date: 20100525
  Serious: Yes (Life-Threatening, Disabling, Other)
  Sender: FDA-Public Use
  Company Number: None

PATIENT
  Sex: Female
  Weight: 46.7205 kg

DRUGS (3)
  1. ZYPREXA [Suspect]
     Indication: PSYCHOTIC DISORDER
     Dosage: UNKNOWN UNKNOWN
     Dates: start: 20080531, end: 20080609
  2. ZYPREXA [Suspect]
     Indication: PSYCHOTIC DISORDER
     Dosage: UNKNOWN UNKNOWN
     Dates: start: 20090123, end: 20090124
  3. SEROQUEL [Suspect]
     Dosage: UNKNOWN UNKNOWN
     Dates: start: 20070106, end: 20070127

REACTIONS (4)
  - MEDICAL DEVICE IMPLANTATION [None]
  - VICTIM OF ABUSE [None]
  - VICTIM OF CRIME [None]
  - VISUAL IMPAIRMENT [None]
